FAERS Safety Report 16868598 (Version 1)
Quarter: 2019Q3

REPORT INFORMATION
  Report Type: Spontaneous
  Country: US (occurrence: US)
  Receive Date: 20190930
  Receipt Date: 20190930
  Transmission Date: 20191005
  Serious: No
  Sender: FDA-Public Use
  Company Number: US-PFIZER INC-2019365261

PATIENT
  Age: 84 Year
  Sex: Female

DRUGS (1)
  1. FLECTOR [Suspect]
     Active Substance: DICLOFENAC EPOLAMINE
     Indication: SPINAL OSTEOARTHRITIS
     Dosage: UNK, 2X/DAY, (1 PATCH 2 TIMES A DAY 90 DAYS)
     Route: 061

REACTIONS (2)
  - Product use in unapproved indication [Unknown]
  - Off label use [Unknown]
